FAERS Safety Report 4317867-8 (Version None)
Quarter: 2004Q1

REPORT INFORMATION
  Report Type: 
  Country: None (occurrence: None)
  Receive Date: 20040316
  Receipt Date: 20040308
  Transmission Date: 20041129
  Serious: Yes (Other)
  Sender: FDA-Public Use
  Company Number: WAES 0403USA00870

PATIENT
  Age: 77 Year
  Sex: Female

DRUGS (6)
  1. CLARITHROMYCIN [Concomitant]
     Route: 048
     Dates: start: 20040218
  2. FLUTICASONE PROPIONATE [Concomitant]
     Route: 055
     Dates: start: 20040218
  3. SINGULAIR [Suspect]
     Indication: ASTHMA
     Route: 048
     Dates: start: 20040218, end: 20040219
  4. MEPTIN [Concomitant]
     Route: 055
     Dates: start: 20040218
  5. SEREVENT [Concomitant]
     Route: 055
     Dates: start: 20040218
  6. THEOPHYLLINE [Concomitant]
     Route: 048
     Dates: start: 20040218

REACTIONS (4)
  - ABNORMAL BEHAVIOUR [None]
  - CONFUSIONAL STATE [None]
  - DEPRESSED LEVEL OF CONSCIOUSNESS [None]
  - HALLUCINATION, AUDITORY [None]
